FAERS Safety Report 6470496-2 (Version None)
Quarter: 2009Q4

REPORT INFORMATION
  Report Type: 
  Country: None (occurrence: None)
  Receive Date: 20091201
  Receipt Date: 20091123
  Transmission Date: 20100525
  Serious: Yes (Other)
  Sender: FDA-Public Use
  Company Number: 2009SP023808

PATIENT
  Age: 66 Year
  Sex: Female

DRUGS (8)
  1. INTRON A [Suspect]
     Dosage: 40 MIU; IV 30 MIU; IV 30 MIU; IV 20 MIU; IV 15 MIU; TIW
     Route: 042
     Dates: start: 20090810, end: 20090816
  2. INTRON A [Suspect]
     Dosage: 40 MIU; IV 30 MIU; IV 30 MIU; IV 20 MIU; IV 15 MIU; TIW
     Route: 042
     Dates: start: 20090824, end: 20091012
  3. INTRON A [Suspect]
     Dosage: 40 MIU; IV 30 MIU; IV 30 MIU; IV 20 MIU; IV 15 MIU; TIW
     Route: 042
     Dates: start: 20090706
  4. INTRON A [Suspect]
     Dosage: 40 MIU; IV 30 MIU; IV 30 MIU; IV 20 MIU; IV 15 MIU; TIW
     Route: 042
     Dates: start: 20090727
  5. INTRON A [Suspect]
     Dosage: 40 MIU; IV 30 MIU; IV 30 MIU; IV 20 MIU; IV 15 MIU; TIW
     Route: 042
     Dates: start: 20091109
  6. EFFEXOR XR                 PROCHLORPERAZINE MALEATE [Concomitant]
  7. AVANZA            (MIRTAZAPINE) [Concomitant]
  8. PROCHLORPERAZINE MALEATE [Concomitant]

REACTIONS (19)
  - ALOPECIA [None]
  - CHILLS [None]
  - DYSGEUSIA [None]
  - FALL [None]
  - FATIGUE [None]
  - HEADACHE [None]
  - HEPATIC ENZYME INCREASED [None]
  - HYPERHIDROSIS [None]
  - INFLAMMATION [None]
  - LIVER DISORDER [None]
  - MUSCULAR WEAKNESS [None]
  - NAUSEA [None]
  - ORTHOSTATIC HYPOTENSION [None]
  - PAIN [None]
  - PIGMENTATION DISORDER [None]
  - PLATELET COUNT INCREASED [None]
  - PYREXIA [None]
  - VOMITING [None]
  - WHITE BLOOD CELL COUNT DECREASED [None]
